FAERS Safety Report 18048243 (Version 1)
Quarter: 2020Q3

REPORT INFORMATION
  Report Type: Spontaneous
  Country: US (occurrence: US)
  Receive Date: 20200720
  Receipt Date: 20200720
  Transmission Date: 20201103
  Serious: No
  Sender: FDA-Public Use
  Company Number: None

PATIENT
  Age: 31 Year
  Sex: Female
  Weight: 60.75 kg

DRUGS (9)
  1. DEXTROAMPHET SACCHARAT, AMPHET ASPARTATE, DEXTROAMPHET SULFATE AND AMPHET SULFAT [Suspect]
     Active Substance: AMPHETAMINE ASPARTATE\AMPHETAMINE SULFATE\DEXTROAMPHETAMINE SACCHARATE\DEXTROAMPHETAMINE SULFATE
     Indication: ATTENTION DEFICIT HYPERACTIVITY DISORDER
     Dosage: ?          QUANTITY:60 TABLET(S);?
     Route: 048
     Dates: start: 20200630, end: 20200718
  2. CLINDAMYCIN. [Concomitant]
     Active Substance: CLINDAMYCIN
  3. VITAMIN B12 [Concomitant]
     Active Substance: CYANOCOBALAMIN
  4. LAMOTRIGINE. [Concomitant]
     Active Substance: LAMOTRIGINE
  5. AKLIEF [Concomitant]
     Active Substance: TRIFAROTENE
  6. TRETINOIN. [Concomitant]
     Active Substance: TRETINOIN
  7. FISH OIL [Concomitant]
     Active Substance: FISH OIL
  8. METHYLFOLATE [Concomitant]
     Active Substance: LEVOMEFOLATE CALCIUM
  9. DESVENLAFAXINE. [Concomitant]
     Active Substance: DESVENLAFAXINE

REACTIONS (8)
  - Therapeutic product ineffective [None]
  - Panic reaction [None]
  - Depression [None]
  - Anxiety [None]
  - Somnolence [None]
  - Insomnia [None]
  - Product substitution issue [None]
  - Headache [None]

NARRATIVE: CASE EVENT DATE: 20200701
